FAERS Safety Report 10467459 (Version 1)
Quarter: 2014Q3

REPORT INFORMATION
  Report Type: Report from Study
  Country: CA (occurrence: CA)
  Receive Date: 20140922
  Receipt Date: 20140922
  Transmission Date: 20150326
  Serious: Yes (Death)
  Sender: FDA-Public Use
  Company Number: CA-BRISTOL-MYERS SQUIBB COMPANY-21419841

PATIENT
  Age: 60 Year
  Sex: Female

DRUGS (17)
  1. FOLIC ACID. [Concomitant]
     Active Substance: FOLIC ACID
  2. ROSUVASTATIN [Concomitant]
     Active Substance: ROSUVASTATIN
  3. ELAVIL [Concomitant]
     Active Substance: AMITRIPTYLINE HYDROCHLORIDE
  4. SALBUTAMOL [Concomitant]
     Active Substance: ALBUTEROL
  5. FLOVENT [Concomitant]
     Active Substance: FLUTICASONE PROPIONATE
  6. BEZALIP [Concomitant]
     Active Substance: BEZAFIBRATE
  7. CELEBREX [Concomitant]
     Active Substance: CELECOXIB
  8. HYDROXYCHLOROQUINE [Concomitant]
     Active Substance: HYDROXYCHLOROQUINE
  9. FLONASE [Concomitant]
     Active Substance: FLUTICASONE PROPIONATE
  10. HYDROCHLOROTHIAZIDE. [Concomitant]
     Active Substance: HYDROCHLOROTHIAZIDE
  11. RAMIPRIL. [Concomitant]
     Active Substance: RAMIPRIL
  12. CYCLOBENZAPRINE HCL [Concomitant]
     Active Substance: CYCLOBENZAPRINE HYDROCHLORIDE
  13. ORENCIA [Suspect]
     Active Substance: ABATACEPT
     Indication: RHEUMATOID ARTHRITIS
     Route: 058
     Dates: start: 20140828, end: 2014
  14. IRBESARTAN. [Concomitant]
     Active Substance: IRBESARTAN
  15. AMLODIPINE [Concomitant]
     Active Substance: AMLODIPINE BESYLATE
  16. METFORMIN [Concomitant]
     Active Substance: METFORMIN HYDROCHLORIDE
  17. EUROCAL D [Concomitant]

REACTIONS (1)
  - Death [Fatal]

NARRATIVE: CASE EVENT DATE: 20140913
